FAERS Safety Report 5022175-6 (Version None)
Quarter: 2006Q2

REPORT INFORMATION
  Report Type: 
  Country: None (occurrence: None)
  Receive Date: 20060609
  Receipt Date: 20060519
  Transmission Date: 20061013
  Serious: Yes (Other)
  Sender: FDA-Public Use
  Company Number: 2006UW09931

PATIENT
  Age: 57 Year
  Sex: Female
  Weight: 65.6 kg

DRUGS (2)
  1. ROSUVASTATIN [Suspect]
     Indication: DIABETES MELLITUS NON-INSULIN-DEPENDENT
     Dosage: 1 TABLET
     Route: 048
     Dates: start: 20060328, end: 20060413
  2. METFORMINA [Concomitant]
     Indication: DIABETES MELLITUS
     Dosage: 1/2 PILL EVERY 12 HOURS
     Route: 048
     Dates: start: 20020302

REACTIONS (3)
  - OCULAR HYPERAEMIA [None]
  - PAIN IN EXTREMITY [None]
  - RENAL COLIC [None]
